FAERS Safety Report 16151652 (Version 1)
Quarter: 2019Q2

REPORT INFORMATION
  Report Type: Spontaneous
  Country: NL (occurrence: BE)
  Receive Date: 20190403
  Receipt Date: 20190403
  Transmission Date: 20190711
  Serious: Yes (Other)
  Sender: FDA-Public Use
  Company Number: BE-FRESENIUS KABI-FK201903260

PATIENT
  Sex: Female
  Weight: 85 kg

DRUGS (2)
  1. CARBOPLATIN (MANUFACTURER UNKNOWN) [Suspect]
     Active Substance: CARBOPLATIN
     Indication: ENDOMETRIAL ADENOCARCINOMA
     Dosage: UNK
     Route: 065
     Dates: start: 201704, end: 201802
  2. PACLITAXEL (MANUFACTURER UNKNOWN) [Suspect]
     Active Substance: PACLITAXEL
     Indication: ENDOMETRIAL ADENOCARCINOMA
     Dosage: UNK
     Route: 065
     Dates: start: 201704, end: 201802

REACTIONS (3)
  - Malignant neoplasm progression [Unknown]
  - Embolism venous [Unknown]
  - Off label use [Unknown]

NARRATIVE: CASE EVENT DATE: 201705
